FAERS Safety Report 6722854-6 (Version None)
Quarter: 2010Q2

REPORT INFORMATION
  Report Type: 
  Country: None (occurrence: None)
  Receive Date: 20100512
  Receipt Date: 20100512
  Transmission Date: 20101027
  Serious: Yes (Hospitalization)
  Sender: FDA-Public Use
  Company Number: None

PATIENT
  Age: 67 Year
  Sex: Female

DRUGS (1)
  1. DEMECLOCYCLINE 150 MG [Suspect]
     Indication: HYPONATRAEMIA
     Dosage: 150 MG PO
     Route: 048
     Dates: start: 20100329, end: 20100403

REACTIONS (5)
  - ANXIETY [None]
  - BLOOD PRESSURE INCREASED [None]
  - PHYSICAL ABUSE [None]
  - UNRESPONSIVE TO STIMULI [None]
  - VERBAL ABUSE [None]
